FAERS Safety Report 15334546 (Version 1)
Quarter: 2018Q3

REPORT INFORMATION
  Report Type: Spontaneous
  Country: US (occurrence: US)
  Receive Date: 20180830
  Receipt Date: 20180830
  Transmission Date: 20181010
  Serious: No
  Sender: FDA-Public Use
  Company Number: US-BAYER-2018-157818

PATIENT
  Sex: Female

DRUGS (1)
  1. MENOSTAR [Suspect]
     Active Substance: ESTRADIOL
     Dosage: 14 MCG
     Route: 062

REACTIONS (2)
  - Application site rash [None]
  - Wrong technique in product usage process [None]
